FAERS Safety Report 15833351 (Version 1)
Quarter: 2019Q1

REPORT INFORMATION
  Report Type: Spontaneous
  Country: JP (occurrence: JP)
  Receive Date: 20190116
  Receipt Date: 20190116
  Transmission Date: 20190417
  Serious: Yes (Other)
  Sender: FDA-Public Use
  Company Number: JP-PFIZER INC-2019020152

PATIENT
  Sex: Female

DRUGS (3)
  1. RHEUMATREX [Suspect]
     Active Substance: METHOTREXATE SODIUM
     Dosage: 2 DF, DAILY
  2. WARFARIN [Concomitant]
     Active Substance: WARFARIN
  3. RHEUMATREX [Suspect]
     Active Substance: METHOTREXATE SODIUM
     Dosage: 3 DF, DAILY

REACTIONS (2)
  - Oesophageal carcinoma [Unknown]
  - Post procedural haemorrhage [Unknown]
